FAERS Safety Report 7196218-8 (Version None)
Quarter: 2010Q4

REPORT INFORMATION
  Report Type: 
  Country: None (occurrence: None)
  Receive Date: 20101223
  Receipt Date: 20101018
  Transmission Date: 20110411
  Serious: No
  Sender: FDA-Public Use
  Company Number: US-AMGEN-USASP2010000749

PATIENT

DRUGS (4)
  1. ENBREL [Suspect]
     Indication: PSORIASIS
     Dosage: 50 MG, QWK
     Dates: start: 20100811
  2. ENBREL [Suspect]
     Indication: PSORIATIC ARTHROPATHY
  3. ENBREL [Suspect]
  4. METHOTREXATE (TREXALL) [Concomitant]
     Dates: start: 20100201

REACTIONS (3)
  - INJECTION SITE PAIN [None]
  - NAIL DISCOLOURATION [None]
  - ONYCHOMADESIS [None]
